FAERS Safety Report 11680449 (Version 2)
Quarter: 2015Q4

REPORT INFORMATION
  Report Type: Spontaneous
  Country: US (occurrence: US)
  Receive Date: 20151027
  Receipt Date: 20151104
  Transmission Date: 20160304
  Serious: No
  Sender: FDA-Public Use
  Company Number: US-ELI_LILLY_AND_COMPANY-US201008007668

PATIENT
  Age: 64 Year
  Sex: Female

DRUGS (6)
  1. FORTEO [Suspect]
     Active Substance: TERIPARATIDE
     Dosage: 20 UG, QD
  2. FORTEO [Suspect]
     Active Substance: TERIPARATIDE
     Dosage: 20 UG, DAILY (1/D)
     Route: 058
  3. FORTEO [Suspect]
     Active Substance: TERIPARATIDE
     Indication: OSTEOPOROSIS
     Dosage: 20 UG, DAILY (1/D)
     Route: 058
     Dates: start: 20100806
  4. FORTEO [Suspect]
     Active Substance: TERIPARATIDE
     Dosage: 20 UG, QD
  5. FORTEO [Suspect]
     Active Substance: TERIPARATIDE
     Dosage: 20 UG, DAILY (1/D)
     Route: 058
  6. FORTEO [Suspect]
     Active Substance: TERIPARATIDE
     Dosage: 20 UG, DAILY (1/D)
     Route: 058

REACTIONS (15)
  - Rash [Recovered/Resolved]
  - Pain [Recovered/Resolved]
  - Fall [Unknown]
  - Gastroenteritis viral [Unknown]
  - Pneumonia [Recovered/Resolved]
  - Injection site bruising [Recovered/Resolved]
  - Injection site warmth [Recovered/Resolved]
  - Somnambulism [Unknown]
  - Injection site erythema [Recovered/Resolved]
  - Injection site pain [Unknown]
  - Blood calcium increased [Unknown]
  - Urinary tract infection [Unknown]
  - Malaise [Not Recovered/Not Resolved]
  - Back disorder [Unknown]
  - Vitamin D increased [Unknown]

NARRATIVE: CASE EVENT DATE: 201008
